FAERS Safety Report 7282270-8 (Version None)
Quarter: 2011Q1

REPORT INFORMATION
  Report Type: 
  Country: None (occurrence: None)
  Receive Date: 20110209
  Receipt Date: 20110207
  Transmission Date: 20110831
  Serious: Yes (Death)
  Sender: FDA-Public Use
  Company Number: JP-PFIZER INC-2011002095

PATIENT
  Age: 62 Year
  Sex: Female

DRUGS (1)
  1. TEMSIROLIMUS [Suspect]
     Dosage: 25 MG, WEEKLY

REACTIONS (1)
  - DEATH [None]
